FAERS Safety Report 7331750-5 (Version None)
Quarter: 2011Q1

REPORT INFORMATION
  Report Type: 
  Country: None (occurrence: None)
  Receive Date: 20110228
  Receipt Date: 20110228
  Transmission Date: 20110831
  Serious: Yes (Other)
  Sender: FDA-Public Use
  Company Number: None

PATIENT
  Sex: Female
  Weight: 48.9885 kg

DRUGS (4)
  1. IMIQUODUN CREAM 5 (BRANDNAME IS ADARA) [Suspect]
     Indication: SKIN CANCER
     Dosage: SEE DESCRIPTION OF EVENT
     Dates: start: 20110105
  2. IMIQUODUN CREAM 5 (BRANDNAME IS ADARA) [Suspect]
     Indication: SKIN CANCER
     Dosage: SEE DESCRIPTION OF EVENT
     Dates: start: 20110111, end: 20110119
  3. IMIQUODUN CREAM 5 (BRANDNAME IS ADARA) [Suspect]
     Indication: SKIN CANCER
     Dosage: SEE DESCRIPTION OF EVENT
     Dates: start: 20110107
  4. IMIQUODUN CREAM 5 (BRANDNAME IS ADARA) [Suspect]
     Indication: SKIN CANCER
     Dosage: SEE DESCRIPTION OF EVENT
     Dates: start: 20110109

REACTIONS (5)
  - RASH MACULAR [None]
  - DYSPNOEA [None]
  - VISUAL IMPAIRMENT [None]
  - DECREASED APPETITE [None]
  - FATIGUE [None]
